FAERS Safety Report 14892294 (Version 1)
Quarter: 2018Q2

REPORT INFORMATION
  Report Type: Spontaneous
  Country: US (occurrence: US)
  Receive Date: 20180514
  Receipt Date: 20180514
  Transmission Date: 20180711
  Serious: No
  Sender: FDA-Public Use
  Company Number: US-UNITED THERAPEUTICS-UNT-2018-000563

PATIENT
  Age: 35 Year
  Sex: Female
  Weight: 40.82 kg

DRUGS (3)
  1. LETAIRIS [Concomitant]
     Active Substance: AMBRISENTAN
     Indication: PRODUCT USED FOR UNKNOWN INDICATION
     Route: 065
  2. REMODULIN [Suspect]
     Active Substance: TREPROSTINIL
     Indication: PULMONARY ARTERIAL HYPERTENSION
     Dosage: 0.03 ?G/KG, CONTINUING
     Route: 058
     Dates: start: 20171102
  3. REMODULIN [Suspect]
     Active Substance: TREPROSTINIL
     Indication: PULMONARY HYPERTENSION
     Dosage: 0.0325 ?G/KG, CONTINUING
     Route: 058

REACTIONS (7)
  - Infusion site erythema [Unknown]
  - Device breakage [Unknown]
  - Infusion site swelling [Unknown]
  - Infusion site discharge [Unknown]
  - Complication associated with device [Unknown]
  - Infusion site induration [Unknown]
  - Infusion site pain [Unknown]

NARRATIVE: CASE EVENT DATE: 201801
